FAERS Safety Report 7061246-X (Version None)
Quarter: 2010Q4

REPORT INFORMATION
  Report Type: 
  Country: None (occurrence: None)
  Receive Date: 20101026
  Receipt Date: 20101018
  Transmission Date: 20110411
  Serious: No
  Sender: FDA-Public Use
  Company Number: US-PFIZER INC-2010132727

PATIENT
  Sex: Female

DRUGS (2)
  1. ZOLOFT [Suspect]
     Dosage: 25 MG, DAILY
     Route: 048
     Dates: start: 20101012
  2. LITHIUM [Concomitant]
     Dosage: UNK

REACTIONS (2)
  - DEPRESSION [None]
  - NAUSEA [None]
